FAERS Safety Report 9267049 (Version 3)
Quarter: 2013Q2

REPORT INFORMATION
  Report Type: Spontaneous
  Country: US (occurrence: US)
  Receive Date: 20130502
  Receipt Date: 20130517
  Transmission Date: 20140414
  Serious: Yes (Hospitalization, Other)
  Sender: FDA-Public Use
  Company Number: US-PFIZER INC-2013134320

PATIENT
  Age: 89 Year
  Sex: Female

DRUGS (1)
  1. CALAN SR [Suspect]
     Dosage: 240 MG, 1X/DAY
     Dates: start: 19930401

REACTIONS (1)
  - Pneumonia [Unknown]
